FAERS Safety Report 6157122-7 (Version None)
Quarter: 2009Q2

REPORT INFORMATION
  Report Type: 
  Country: None (occurrence: None)
  Receive Date: 20090416
  Receipt Date: 20090410
  Transmission Date: 20091009
  Serious: Yes (Hospitalization, Other)
  Sender: FDA-Public Use
  Company Number: US-ASTRAZENECA-2008UW27415

PATIENT
  Age: 48 Year
  Sex: Female

DRUGS (9)
  1. SEROQUEL [Suspect]
     Indication: BIPOLAR DISORDER
     Dosage: 200, 300, AND 400 MG
     Route: 048
     Dates: start: 20060810, end: 20081022
  2. SEROQUEL [Suspect]
     Indication: MENTAL DISORDER
     Dosage: 200, 300, AND 400 MG
     Route: 048
     Dates: start: 20060810, end: 20081022
  3. ABILIFY [Concomitant]
  4. GEODON [Concomitant]
  5. HALDOL [Concomitant]
  6. THORAZINE [Concomitant]
  7. ZYPREXA [Concomitant]
  8. PROZAC [Concomitant]
  9. TRAZODONE HCL [Concomitant]

REACTIONS (3)
  - ANKLE FRACTURE [None]
  - DIABETES MELLITUS [None]
  - DIABETIC NEUROPATHY [None]
